FAERS Safety Report 5215304-2 (Version None)
Quarter: 2007Q1

REPORT INFORMATION
  Report Type: 
  Country: None (occurrence: None)
  Receive Date: 20070117
  Receipt Date: 20070104
  Transmission Date: 20070707
  Serious: Yes (Death, Hospitalization)
  Sender: FDA-Public Use
  Company Number: HQWYE992322DEC06

PATIENT
  Age: 41 Year
  Sex: Female

DRUGS (6)
  1. CORDARONE [Suspect]
     Dosage: 150 MG 1X PER 1 DAY
     Route: 013
     Dates: start: 20061130, end: 20061130
  2. HEPARIN [Concomitant]
  3. NIMBEX [Concomitant]
  4. NICARDIPINE HYDROCHLORIDE [Concomitant]
  5. NORADRENALINE (NOREPINEPHRINE) [Concomitant]
  6. EPHEDRINE SUL CAP [Concomitant]

REACTIONS (2)
  - INCORRECT ROUTE OF DRUG ADMINISTRATION [None]
  - WRONG DRUG ADMINISTERED [None]
